FAERS Safety Report 9643594 (Version 7)
Quarter: 2014Q3

REPORT INFORMATION
  Report Type: Spontaneous
  Country: US (occurrence: US)
  Receive Date: 20131024
  Receipt Date: 20140806
  Transmission Date: 20150326
  Serious: Yes (Hospitalization, Disabling, Other)
  Sender: FDA-Public Use
  Company Number: US-009507513-1205USA04971

PATIENT
  Sex: Female
  Weight: 98.41 kg

DRUGS (5)
  1. FOSAMAX [Suspect]
     Active Substance: ALENDRONATE SODIUM
     Dosage: 10 MG, UNK
     Route: 048
  2. FOSAMAX [Suspect]
     Active Substance: ALENDRONATE SODIUM
     Indication: OSTEOPOROSIS
     Dosage: 5 MG, UNK
     Route: 048
     Dates: start: 19970423
  3. FOSAMAX [Suspect]
     Active Substance: ALENDRONATE SODIUM
     Dosage: 70 MG, QW
     Route: 048
     Dates: start: 20060301, end: 20080205
  4. FOSAMAX [Suspect]
     Active Substance: ALENDRONATE SODIUM
     Dosage: UNK
     Route: 048
  5. ALENDRONATE SODIUM. [Suspect]
     Active Substance: ALENDRONATE SODIUM
     Indication: OSTEOPOROSIS
     Dosage: 70 MG, QW
     Route: 048
     Dates: start: 20100708

REACTIONS (66)
  - Spinal laminectomy [Unknown]
  - Blood glucose increased [Unknown]
  - Pulmonary arterial pressure increased [Unknown]
  - Cataract [Unknown]
  - Open reduction of fracture [Unknown]
  - Medical device removal [Unknown]
  - Streptococcal infection [Unknown]
  - Pyrexia [Unknown]
  - Carpal tunnel decompression [Unknown]
  - Respiratory tract infection [Recovered/Resolved]
  - Confusional state [Unknown]
  - Osteoarthritis [Unknown]
  - Pulmonary hypertension [Unknown]
  - Sleep apnoea syndrome [Unknown]
  - Oedema peripheral [Unknown]
  - Malaise [Unknown]
  - Open reduction of fracture [Recovered/Resolved]
  - Open reduction of fracture [Unknown]
  - Osteoporosis [Unknown]
  - Bone density decreased [Unknown]
  - Debridement [Unknown]
  - Clostridium difficile colitis [Unknown]
  - Anaemia [Unknown]
  - Medical device removal [Unknown]
  - Femur fracture [Unknown]
  - Granuloma [Unknown]
  - Device failure [Unknown]
  - Wound dehiscence [Unknown]
  - Fall [Unknown]
  - Femur fracture [Recovered/Resolved]
  - Knee arthroplasty [Unknown]
  - Hip arthroplasty [Unknown]
  - Cataract operation [Unknown]
  - Device breakage [Unknown]
  - Device breakage [Unknown]
  - Anaemia [Unknown]
  - Medical device removal [Unknown]
  - Patellectomy [Unknown]
  - Surgery [Unknown]
  - Leukocytosis [Unknown]
  - Tooth fracture [Unknown]
  - Device breakage [Unknown]
  - Haematoma [Unknown]
  - Hyperkalaemia [Unknown]
  - Constipation [Not Recovered/Not Resolved]
  - Fracture nonunion [Not Recovered/Not Resolved]
  - Multiple fractures [Unknown]
  - Thrombocytosis [Unknown]
  - Tendon operation [Unknown]
  - Staphylococcal infection [Unknown]
  - Carpal tunnel syndrome [Unknown]
  - Knee operation [Unknown]
  - Knee operation [Unknown]
  - Rotator cuff repair [Unknown]
  - Internal fixation of fracture [Unknown]
  - Patella fracture [Unknown]
  - Cellulitis [Unknown]
  - Wheezing [Unknown]
  - Medical device removal [Unknown]
  - Medical device removal [Unknown]
  - Acute prerenal failure [Unknown]
  - Knee arthroplasty [Unknown]
  - Hip arthroplasty [Unknown]
  - Electrocardiogram ST segment abnormal [Unknown]
  - Osteomyelitis [Not Recovered/Not Resolved]
  - Aortic arteriosclerosis [Unknown]

NARRATIVE: CASE EVENT DATE: 1999
